FAERS Safety Report 6156829-5 (Version None)
Quarter: 2009Q2

REPORT INFORMATION
  Report Type: 
  Country: None (occurrence: None)
  Receive Date: 20090413
  Receipt Date: 20090413
  Transmission Date: 20091009
  Serious: Yes (Other)
  Sender: FDA-Public Use
  Company Number: None

PATIENT
  Age: 19 Year
  Sex: Female
  Weight: 111.1313 kg

DRUGS (1)
  1. AMOXICILLIN [Suspect]
     Indication: TONSILLITIS
     Dosage: 1 3 TIMES A DAY PO
     Route: 048
     Dates: start: 20090409, end: 20090412

REACTIONS (2)
  - GINGIVAL SWELLING [None]
  - SWOLLEN TONGUE [None]
